FAERS Safety Report 6736380-1 (Version None)
Quarter: 2010Q2

REPORT INFORMATION
  Report Type: 
  Country: None (occurrence: None)
  Receive Date: 20100519
  Receipt Date: 20100513
  Transmission Date: 20101027
  Serious: Yes (Other)
  Sender: FDA-Public Use
  Company Number: 2010SP027064

PATIENT
  Age: 38 Year
  Sex: Female
  Weight: 49 kg

DRUGS (9)
  1. ROCURONIUM BROMIDE [Suspect]
     Indication: HYPOTONIA
     Dosage: 30 MG, ONCE, IV; 5 MG ONCE, IV; 15 MG ONCE, IV
     Route: 042
     Dates: start: 20090820, end: 20090820
  2. ROCURONIUM BROMIDE [Suspect]
     Indication: NEUROMUSCULAR BLOCKING THERAPY
     Dosage: 30 MG, ONCE, IV; 5 MG ONCE, IV; 15 MG ONCE, IV
     Route: 042
     Dates: start: 20090820, end: 20090820
  3. ROCURONIUM BROMIDE [Suspect]
     Indication: HYPOTONIA
     Dosage: 30 MG, ONCE, IV; 5 MG ONCE, IV; 15 MG ONCE, IV
     Route: 042
     Dates: start: 20090820, end: 20090820
  4. ROCURONIUM BROMIDE [Suspect]
     Indication: NEUROMUSCULAR BLOCKING THERAPY
     Dosage: 30 MG, ONCE, IV; 5 MG ONCE, IV; 15 MG ONCE, IV
     Route: 042
     Dates: start: 20090820, end: 20090820
  5. ROCURONIUM BROMIDE [Suspect]
     Indication: HYPOTONIA
     Dosage: 30 MG, ONCE, IV; 5 MG ONCE, IV; 15 MG ONCE, IV
     Route: 042
     Dates: start: 20090820, end: 20090820
  6. ROCURONIUM BROMIDE [Suspect]
     Indication: NEUROMUSCULAR BLOCKING THERAPY
     Dosage: 30 MG, ONCE, IV; 5 MG ONCE, IV; 15 MG ONCE, IV
     Route: 042
     Dates: start: 20090820, end: 20090820
  7. FENTANYL-100 [Suspect]
     Indication: DRUG USE FOR UNKNOWN INDICATION
     Dosage: 5 ML
     Dates: start: 20090820, end: 20090820
  8. ULTIVA [Suspect]
     Indication: DRUG USE FOR UNKNOWN INDICATION
     Dosage: 0.25 MCG/KG; INDRP
     Route: 041
     Dates: start: 20090820, end: 20090820
  9. ROPION (FLURBIPROFEN AXETIL) [Suspect]
     Indication: DRUG USE FOR UNKNOWN INDICATION
     Dosage: 50 MG
     Dates: start: 20090820, end: 20090820

REACTIONS (3)
  - BRADYCARDIA [None]
  - CAROTID SINUS SYNDROME [None]
  - PROCEDURAL COMPLICATION [None]
